FAERS Safety Report 6873033-3 (Version None)
Quarter: 2010Q3

REPORT INFORMATION
  Report Type: 
  Country: None (occurrence: None)
  Receive Date: 20100723
  Receipt Date: 20081216
  Transmission Date: 20110219
  Serious: No
  Sender: FDA-Public Use
  Company Number: US-PFIZER INC-2008097359

PATIENT
  Sex: Female
  Weight: 57.596 kg

DRUGS (4)
  1. CHANTIX [Suspect]
     Dosage: 0.5 MG, 2X/DAY
     Dates: start: 20081027
  2. METHADONE HCL [Concomitant]
  3. DILAUDID [Concomitant]
  4. LIDODERM [Concomitant]
     Route: 061

REACTIONS (4)
  - CIRCUMSTANCE OR INFORMATION CAPABLE OF LEADING TO MEDICATION ERROR [None]
  - DRUG DOSE OMISSION [None]
  - NAUSEA [None]
  - UNEVALUABLE EVENT [None]
